FAERS Safety Report 4783777-5 (Version None)
Quarter: 2005Q3

REPORT INFORMATION
  Report Type: 
  Country: None (occurrence: None)
  Receive Date: 20050928
  Receipt Date: 20050921
  Transmission Date: 20060218
  Serious: Yes (Disabling)
  Sender: FDA-Public Use
  Company Number: 2005RR-00735

PATIENT
  Age: 19 Year
  Sex: Female

DRUGS (4)
  1. FLUOXETINE [Suspect]
     Indication: DEPRESSION
     Dosage: 20 MG, QD, ORAL
     Route: 048
     Dates: start: 20040825, end: 20050902
  2. DIFLUCAN [Suspect]
     Indication: CANDIDIASIS
     Dosage: 150  UNK, QD, ORAL
     Route: 048
     Dates: start: 20050825
  3. LEVONORGESTREL AND ETHINYL ESTRADIOL [Concomitant]
  4. CHORAMPHENICOL [Concomitant]

REACTIONS (2)
  - CONVULSION [None]
  - DRUG INTERACTION [None]
